FAERS Safety Report 8611534-8 (Version None)
Quarter: 2012Q3

REPORT INFORMATION
  Report Type: 
  Country: None (occurrence: None)
  Receive Date: 20120822
  Receipt Date: 20120814
  Transmission Date: 20120928
  Serious: Yes (Hospitalization)
  Sender: FDA-Public Use
  Company Number: US-B.I. PHARMACEUTICALS,INC./RIDGEFIELD-2012-BP-19287BP

PATIENT
  Age: 84 Year
  Sex: Female

DRUGS (13)
  1. GABAPENTIN [Concomitant]
  2. DIOVAN [Concomitant]
  3. NEXIUM [Concomitant]
  4. LANSOPRAZOLE [Concomitant]
  5. TEKTURNA [Concomitant]
  6. PRAVASTATIN [Concomitant]
  7. COREG [Concomitant]
  8. SYNTHROID [Concomitant]
  9. IMDUR [Concomitant]
  10. ZOLPIDEM [Concomitant]
  11. PRADAXA [Suspect]
     Indication: ATRIAL FIBRILLATION
  12. ARICEPT [Concomitant]
  13. DIGOXIN [Concomitant]

REACTIONS (1)
  - GASTROINTESTINAL HAEMORRHAGE [None]
